FAERS Safety Report 16305614 (Version 12)
Quarter: 2020Q2

REPORT INFORMATION
  Report Type: Spontaneous
  Country: US (occurrence: US)
  Receive Date: 20190513
  Receipt Date: 20200429
  Transmission Date: 20200713
  Serious: Yes (Hospitalization)
  Sender: FDA-Public Use
  Company Number: US-PFIZER INC-2019202608

PATIENT
  Age: 51 Year
  Sex: Male
  Weight: 88.44 kg

DRUGS (5)
  1. BOSULIF [Suspect]
     Active Substance: BOSUTINIB MONOHYDRATE
     Indication: CHRONIC MYELOID LEUKAEMIA
     Dosage: 500 MG, CYCLIC (ONCE IN 9 DAY)
     Dates: start: 201904
  2. BOSULIF [Suspect]
     Active Substance: BOSUTINIB MONOHYDRATE
     Dosage: 200 MG, UNK
  3. BOSULIF [Suspect]
     Active Substance: BOSUTINIB MONOHYDRATE
     Dosage: 100 MG, UNK
  4. BOSULIF [Suspect]
     Active Substance: BOSUTINIB MONOHYDRATE
     Dosage: 300 MG, UNK
  5. BOSULIF [Suspect]
     Active Substance: BOSUTINIB MONOHYDRATE
     Dosage: 500 MG, ALTERNATE DAY [EVERY OTHER DAY]

REACTIONS (16)
  - Feeling abnormal [Not Recovered/Not Resolved]
  - Diarrhoea [Recovered/Resolved]
  - Lethargy [Not Recovered/Not Resolved]
  - Hypersensitivity [Not Recovered/Not Resolved]
  - Blood count abnormal [Not Recovered/Not Resolved]
  - Panic attack [Unknown]
  - Constipation [Recovered/Resolved]
  - Nausea [Unknown]
  - Platelet count decreased [Not Recovered/Not Resolved]
  - Malaise [Unknown]
  - Disturbance in attention [Not Recovered/Not Resolved]
  - Impaired work ability [Not Recovered/Not Resolved]
  - Red blood cell count decreased [Unknown]
  - Rash [Recovered/Resolved]
  - Fatigue [Not Recovered/Not Resolved]
  - White blood cell count decreased [Unknown]

NARRATIVE: CASE EVENT DATE: 201904
